FAERS Safety Report 9089157 (Version 1)
Quarter: 2013Q1

REPORT INFORMATION
  Report Type: Spontaneous
  Country: BR (occurrence: BR)
  Receive Date: 20130131
  Receipt Date: 20130131
  Transmission Date: 20140127
  Serious: Yes (Other)
  Sender: FDA-Public Use
  Company Number: PHHY2013BR007079

PATIENT
  Age: 60 Year
  Sex: Female

DRUGS (2)
  1. OLCADIL [Suspect]
     Indication: DEPRESSION
     Dosage: UNK
     Route: 048
     Dates: start: 201104
  2. VERAPAMIL [Suspect]
     Dosage: UNK

REACTIONS (9)
  - Cataract [Unknown]
  - Gait disturbance [Unknown]
  - Paraesthesia [Unknown]
  - Hypoaesthesia [Not Recovered/Not Resolved]
  - Malaise [Unknown]
  - Nausea [Not Recovered/Not Resolved]
  - Retching [Not Recovered/Not Resolved]
  - Fatigue [Unknown]
  - Pain [Unknown]
